FAERS Safety Report 11986073 (Version 1)
Quarter: 2016Q1

REPORT INFORMATION
  Report Type: Report from Study
  Country: US (occurrence: US)
  Receive Date: 20160202
  Receipt Date: 20160202
  Transmission Date: 20160526
  Serious: No
  Sender: FDA-Public Use
  Company Number: US-ABBVIE-15K-163-1335633-00

PATIENT
  Sex: Female

DRUGS (1)
  1. HUMIRA [Suspect]
     Active Substance: ADALIMUMAB
     Indication: PSORIASIS
     Route: 065

REACTIONS (7)
  - Liver function test abnormal [Unknown]
  - Stress [Unknown]
  - Thyroid disorder [Unknown]
  - Psoriasis [Not Recovered/Not Resolved]
  - Depression [Unknown]
  - Intervertebral disc degeneration [Unknown]
  - Arthralgia [Unknown]
